FAERS Safety Report 7561146-2 (Version None)
Quarter: 2011Q2

REPORT INFORMATION
  Report Type: 
  Country: None (occurrence: None)
  Receive Date: 20110621
  Receipt Date: 20110613
  Transmission Date: 20111010
  Serious: Yes (Death)
  Sender: FDA-Public Use
  Company Number: IT-CELGENEUS-083-50794-11061853

PATIENT

DRUGS (1)
  1. VIDAZA [Suspect]
     Dosage: 120 MILLIGRAM
     Route: 058
     Dates: end: 20110412

REACTIONS (1)
  - DEATH [None]
